FAERS Safety Report 4384101-2 (Version None)
Quarter: 2004Q2

REPORT INFORMATION
  Report Type: 
  Country: None (occurrence: None)
  Receive Date: 20040624
  Receipt Date: 20040614
  Transmission Date: 20050107
  Serious: Yes (Other)
  Sender: FDA-Public Use
  Company Number: US-BRISTOL-MYERS SQUIBB COMPANY-12613576

PATIENT
  Age: 45 Year
  Sex: Female
  Weight: 98 kg

DRUGS (21)
  1. REYATAZ [Suspect]
     Indication: HIV INFECTION
     Route: 048
     Dates: end: 20040101
  2. VIREAD [Concomitant]
     Dosage: DISCONTINUED ABOUT TWO WEEKS BEFORE THE REPORT
     Dates: end: 20040101
  3. NORVIR [Concomitant]
     Dosage: DISCONTINUED ABOUT TWO WEEKS BEFORE THE REPORT
     Dates: end: 20040101
  4. TRIZIVIR [Concomitant]
     Dosage: DISCONTINUED ABOUT TWO WEEKS BEFORE THE REPORT
     Dates: end: 20040101
  5. PROGESTERONE [Concomitant]
  6. PROVERA [Concomitant]
  7. PAXIL [Concomitant]
  8. LOTENSIN [Concomitant]
  9. HYDROCHLOROTHIAZIDE [Concomitant]
  10. METHADONE HCL [Concomitant]
  11. XANAX [Concomitant]
  12. PRILOSEC [Concomitant]
  13. TEMAZEPAM [Concomitant]
  14. CLARITIN-D [Concomitant]
  15. IRON [Concomitant]
  16. IMITREX [Concomitant]
  17. VITAMIN C [Concomitant]
  18. VITAMIN E [Concomitant]
  19. VITAMIN B-12 [Concomitant]
  20. MULTI-VITAMIN [Concomitant]
  21. IBUPROFEN [Concomitant]

REACTIONS (4)
  - HYPERGLYCAEMIA [None]
  - HYPERTRIGLYCERIDAEMIA [None]
  - MITOCHONDRIAL TOXICITY [None]
  - UPPER RESPIRATORY TRACT INFECTION [None]
